FAERS Safety Report 10092695 (Version 1)
Quarter: 2014Q2

REPORT INFORMATION
  Report Type: Spontaneous
  Country: US (occurrence: US)
  Receive Date: 20140421
  Receipt Date: 20140421
  Transmission Date: 20141212
  Serious: No
  Sender: FDA-Public Use
  Company Number: US-SANOFI-AVENTIS-2013SA062957

PATIENT
  Age: 53 Year
  Sex: Female

DRUGS (2)
  1. ALLEGRA 24 HOUR [Suspect]
     Route: 048
  2. HYDROXYZINE [Concomitant]

REACTIONS (2)
  - Extra dose administered [Unknown]
  - Psoriasis [Not Recovered/Not Resolved]
